FAERS Safety Report 15603334 (Version 4)
Quarter: 2019Q1

REPORT INFORMATION
  Report Type: Report from Study
  Country: JP (occurrence: JP)
  Receive Date: 20181109
  Receipt Date: 20190222
  Transmission Date: 20190417
  Serious: Yes (Other)
  Sender: FDA-Public Use
  Company Number: JP-TEVA-821080ROM

PATIENT
  Age: 51 Year
  Sex: Female
  Weight: 48.9 kg

DRUGS (19)
  1. GLATIRAMER ACETATE. [Suspect]
     Active Substance: GLATIRAMER ACETATE
     Dosage: 13 MILLIGRAM/MILLILITERS DAILY;
     Route: 058
     Dates: start: 20171226, end: 20180105
  2. PREDONINE [Concomitant]
     Active Substance: PREDNISOLONE
  3. ZOLPIDEM TARTRATE. [Concomitant]
     Active Substance: ZOLPIDEM TARTRATE
     Dates: end: 20170430
  4. GLATIRAMER ACETATE. [Suspect]
     Active Substance: GLATIRAMER ACETATE
     Dosage: 13 MILLIGRAM/MILLILITERS DAILY;
     Route: 058
     Dates: start: 20180112, end: 20180212
  5. GLATIRAMER ACETATE. [Suspect]
     Active Substance: GLATIRAMER ACETATE
     Dosage: 20 MILLIGRAM/MILLILITERS DAILY;
     Route: 058
     Dates: start: 20180213
  6. DEPAKENE-R [Concomitant]
     Active Substance: VALPROATE SODIUM
     Dates: start: 20170330, end: 20170510
  7. BROTIZOLAM [Concomitant]
     Active Substance: BROTIZOLAM
     Dates: end: 20170807
  8. GLATIRAMER ACETATE. [Suspect]
     Active Substance: GLATIRAMER ACETATE
     Indication: RELAPSING-REMITTING MULTIPLE SCLEROSIS
     Dosage: 20 MILLIGRAM/MILLILITERS DAILY;
     Route: 058
     Dates: start: 20170329, end: 20171214
  9. GLATIRAMER ACETATE. [Suspect]
     Active Substance: GLATIRAMER ACETATE
     Dosage: 10 MILLIGRAM/MILLILITERS DAILY;
     Route: 058
     Dates: start: 20171215, end: 20171224
  10. LOXONIN [Concomitant]
     Active Substance: LOXOPROFEN SODIUM
     Route: 065
     Dates: start: 20180112, end: 20180126
  11. GLATIRAMER ACETATE. [Suspect]
     Active Substance: GLATIRAMER ACETATE
     Dosage: 20 MILLIGRAM/MILLILITERS DAILY;
     Route: 058
     Dates: start: 20171225, end: 20171225
  12. VESICARE [Concomitant]
     Active Substance: SOLIFENACIN SUCCINATE
  13. MAGNESIUM OXIDE. [Concomitant]
     Active Substance: MAGNESIUM OXIDE
  14. EDIROL [Concomitant]
     Active Substance: ELDECALCITOL
  15. BELSOMRA [Concomitant]
     Active Substance: SUVOREXANT
     Dates: start: 20170512, end: 20170514
  16. BUP-4 [Concomitant]
     Active Substance: PROPIVERINE
  17. FEXOFENADINE HYDROCHLORIDE. [Concomitant]
     Active Substance: FEXOFENADINE HYDROCHLORIDE
     Dates: start: 20170329, end: 20170510
  18. NEUQUINON [Concomitant]
     Active Substance: UBIDECARENONE
     Dates: end: 20170510
  19. PREDNISOLONE. [Concomitant]
     Active Substance: PREDNISOLONE
     Route: 065

REACTIONS (9)
  - Injection site pain [Recovered/Resolved]
  - Injection site pruritus [Recovered/Resolved]
  - Rash [Recovering/Resolving]
  - Prescribed underdose [Unknown]
  - Product prescribing error [Unknown]
  - Chills [Recovered/Resolved]
  - Eczema [Recovered/Resolved]
  - Multiple sclerosis [Recovering/Resolving]
  - Influenza [Recovered/Resolved]

NARRATIVE: CASE EVENT DATE: 20170329
